FAERS Safety Report 23952166 (Version 3)
Quarter: 2024Q2

REPORT INFORMATION
  Report Type: Spontaneous
  Country: US (occurrence: US)
  Receive Date: 20240607
  Receipt Date: 20240624
  Transmission Date: 20240715
  Serious: No
  Sender: FDA-Public Use
  Company Number: US-002147023-NVSC2024US119316

PATIENT
  Age: 85 Year
  Sex: Female
  Weight: 67.12 kg

DRUGS (9)
  1. LEQVIO [Suspect]
     Active Substance: INCLISIRAN SODIUM
     Indication: Low density lipoprotein increased
     Dosage: 284 MG (ONE SINGLE DOSE )
     Route: 058
     Dates: start: 20240309, end: 20240603
  2. LEQVIO [Suspect]
     Active Substance: INCLISIRAN SODIUM
     Indication: Blood cholesterol increased
     Dosage: UNK (Q 6MONTHS)
     Route: 065
     Dates: start: 20240301
  3. OMEPRAZOLE [Concomitant]
     Active Substance: DONEPEZIL HYDROCHLORIDE\OMEPRAZOLE\OMEPRAZOLE MAGNESIUM
     Indication: Product used for unknown indication
     Dosage: 20 MG
     Route: 065
  4. PROGESTERONE [Concomitant]
     Active Substance: PROGESTERONE
     Indication: Product used for unknown indication
     Dosage: 10 MG
     Route: 065
  5. SYNTHROID [Concomitant]
     Active Substance: LEVOTHYROXINE SODIUM
     Indication: Product used for unknown indication
     Dosage: 88 MG
     Route: 065
  6. DIVALPRAX [Concomitant]
     Indication: Product used for unknown indication
     Dosage: 125 MG, BID
     Route: 065
  7. LOSARTAN [Concomitant]
     Active Substance: LOSARTAN
     Indication: Product used for unknown indication
     Dosage: 20 MG, QD
     Route: 065
  8. MAGNESIUM [Concomitant]
     Active Substance: MAGNESIUM
     Indication: Product used for unknown indication
     Dosage: 100 MG
     Route: 065
  9. OMEGA 3 [Concomitant]
     Active Substance: CAPSAICIN
     Indication: Product used for unknown indication
     Route: 065

REACTIONS (3)
  - Back pain [Unknown]
  - Cough [Unknown]
  - Nausea [Unknown]

NARRATIVE: CASE EVENT DATE: 20240605
